FAERS Safety Report 17875485 (Version 1)
Quarter: 2020Q2

REPORT INFORMATION
  Report Type: Spontaneous
  Country: NL (occurrence: NL)
  Receive Date: 20200609
  Receipt Date: 20200609
  Transmission Date: 20200714
  Serious: Yes (Other)
  Sender: FDA-Public Use
  Company Number: NL-MYLANLABS-2020M1054489

PATIENT
  Age: 85 Year
  Sex: Female

DRUGS (2)
  1. NITROFURANTOIN. [Suspect]
     Active Substance: NITROFURANTOIN
     Indication: URINARY TRACT INFECTION
     Dosage: TWO MONTHS REPRESCRIBED
     Route: 065
  2. NITROFURANTOIN. [Suspect]
     Active Substance: NITROFURANTOIN
     Dosage: UNK
     Route: 065

REACTIONS (10)
  - Lung opacity [Unknown]
  - Pyrexia [Unknown]
  - Eosinophilia [Unknown]
  - Drug hypersensitivity [Recovering/Resolving]
  - Interstitial lung disease [Unknown]
  - Myalgia [Recovering/Resolving]
  - Arthralgia [Recovering/Resolving]
  - Chills [Unknown]
  - Rash pruritic [Recovering/Resolving]
  - Fatigue [Unknown]
